FAERS Safety Report 11073658 (Version 1)
Quarter: 2015Q2

REPORT INFORMATION
  Report Type: Spontaneous
  Country: US (occurrence: US)
  Receive Date: 20150428
  Receipt Date: 20150428
  Transmission Date: 20150821
  Serious: Yes (Hospitalization)
  Sender: FDA-Public Use
  Company Number: PHHY2015US045751

PATIENT
  Age: 75 Year
  Sex: Female

DRUGS (10)
  1. HUMALOG [Concomitant]
     Active Substance: INSULIN LISPRO
     Indication: DIABETES MELLITUS
     Dosage: 10 U, TID
     Route: 058
  2. PROCHLORPERAZINE MALEATE. [Concomitant]
     Active Substance: PROCHLORPERAZINE MALEATE
     Indication: DIABETES MELLITUS
     Dosage: 10 MG
     Route: 065
  3. AMLODIPINE [Concomitant]
     Active Substance: AMLODIPINE BESYLATE
     Indication: DIABETES MELLITUS
     Dosage: 5 MG, QD
     Route: 065
  4. K-LOR [Concomitant]
     Indication: DIABETES MELLITUS
     Route: 065
  5. NPH INSULIN [Concomitant]
     Active Substance: INSULIN BEEF
     Indication: DIABETES MELLITUS
     Dosage: 35 U
     Route: 058
  6. APO-FOLIC ACID [Concomitant]
     Active Substance: FOLIC ACID
     Indication: DIABETES MELLITUS
     Dosage: 1 MG, QD
     Route: 065
  7. NIFEDIPINE. [Concomitant]
     Active Substance: NIFEDIPINE
     Indication: DIABETES MELLITUS
     Dosage: 60 MG, QD
     Route: 065
  8. ENALAPRIL [Concomitant]
     Active Substance: ENALAPRIL
     Indication: DIABETES MELLITUS
     Dosage: 20 MG, QD
     Route: 065
  9. PRASUGREL [Concomitant]
     Active Substance: PRASUGREL
     Indication: DIABETES MELLITUS
     Dosage: 10 MG, QD
     Route: 065
  10. PIOGLITAZONE [Suspect]
     Active Substance: PIOGLITAZONE
     Indication: DIABETES MELLITUS
     Dosage: 15 MG, QD
     Route: 065

REACTIONS (4)
  - Electrocardiogram QT prolonged [Recovered/Resolved]
  - Mental status changes [Recovered/Resolved]
  - Ventricular extrasystoles [Recovered/Resolved]
  - Hypoglycaemia [Recovered/Resolved]
